FAERS Safety Report 5656176-1 (Version None)
Quarter: 2008Q1

REPORT INFORMATION
  Report Type: 
  Country: None (occurrence: None)
  Receive Date: 20080305
  Receipt Date: 20080225
  Transmission Date: 20080703
  Serious: Yes (Death, Hospitalization)
  Sender: FDA-Public Use
  Company Number: 028-C5013-08020313

PATIENT
  Age: 52 Year
  Sex: Male
  Weight: 89.7 kg

DRUGS (3)
  1. CC-5013 (LENALIDOMIDE) (CAPSULES) [Suspect]
     Indication: MULTIPLE MYELOMA
     Dosage: 25 MG, DAILY, ORAL
     Route: 048
     Dates: start: 20070913, end: 20080103
  2. DEXAMETHASONE TAB [Suspect]
     Indication: MULTIPLE MYELOMA
     Dosage: 40 MG, (1-4) DAYS
     Dates: start: 20070913, end: 20080103
  3. VELCADE [Concomitant]

REACTIONS (3)
  - DISEASE PROGRESSION [None]
  - MULTIPLE MYELOMA [None]
  - PLEURAL EFFUSION [None]
